FAERS Safety Report 10146823 (Version 2)
Quarter: 2014Q2

REPORT INFORMATION
  Report Type: Report from Study
  Country: US (occurrence: US)
  Receive Date: 20140501
  Receipt Date: 20140528
  Transmission Date: 20141212
  Serious: Yes (Death, Hospitalization)
  Sender: FDA-Public Use
  Company Number: PHEH2014US008601

PATIENT
  Age: 78 Year
  Sex: Male
  Weight: 104 kg

DRUGS (13)
  1. TOBI [Suspect]
     Indication: BRONCHIECTASIS
     Dosage: 1 DF, BID
     Route: 055
     Dates: start: 20130905
  2. TOBI [Suspect]
     Indication: BACTERIAL DISEASE CARRIER
  3. LOSARTAN [Concomitant]
     Dosage: UNK UKN, UNK
  4. CRESTOR [Concomitant]
     Dosage: UNK UKN, UNK
  5. ALLOPURINOL [Concomitant]
     Dosage: UNK UKN, UNK
  6. SERTRALINE [Concomitant]
     Dosage: UNK UKN, UNK
  7. OMEPRAZOLE [Concomitant]
     Dosage: UNK UKN, UNK
  8. FUROSEMIDE [Concomitant]
     Dosage: UNK UKN, UNK
  9. LOVAZA [Concomitant]
     Dosage: UNK UKN, UNK
  10. ASPIRIN [Concomitant]
     Dosage: UNK UKN, UNK
  11. AZITHROMYCIN [Concomitant]
     Dosage: UNK UKN, UNK
  12. PREDNISONE [Concomitant]
     Dosage: UNK UKN, UNK
  13. MULTIVITAMIN [Concomitant]
     Dosage: UNK UKN, UNK

REACTIONS (8)
  - Cardiac failure [Fatal]
  - Pneumonia [Unknown]
  - Blood creatinine increased [Unknown]
  - Fatigue [Unknown]
  - Oedema peripheral [Unknown]
  - Wheezing [Unknown]
  - Dehydration [Unknown]
  - Dyspnoea [Unknown]
